FAERS Safety Report 15292416 (Version 2)
Quarter: 2025Q4

REPORT INFORMATION
  Report Type: Spontaneous
  Country: EU (occurrence: EU)
  Receive Date: 20180818
  Receipt Date: 20251003
  Transmission Date: 20260118
  Serious: Yes (Death, Other)
  Sender: AUROBINDO
  Company Number: EU-AUROBINDO-AUR-APL-2018-042509

PATIENT
  Age: 59 Year
  Sex: Female

DRUGS (3)
  1. LINEZOLID [Suspect]
     Active Substance: LINEZOLID
     Indication: Bacterial infection
     Dosage: UNK
     Route: 065
  2. AMIODARONE [Suspect]
     Active Substance: AMIODARONE
     Indication: Product used for unknown indication
     Dosage: UNK
     Route: 065
     Dates: start: 201712
  3. VORICONAZOLE [Suspect]
     Active Substance: VORICONAZOLE
     Indication: Bacterial infection
     Dosage: UNK
     Route: 042

REACTIONS (9)
  - Stevens-Johnson syndrome [Fatal]
  - Procalcitonin increased [Unknown]
  - C-reactive protein increased [Unknown]
  - Disorientation [Unknown]
  - Abdominal pain [Recovering/Resolving]
  - Confusional state [Unknown]
  - Atrial fibrillation [Unknown]
  - Blood pressure decreased [Unknown]
  - Aggression [Unknown]

NARRATIVE: CASE EVENT DATE: 20170101
